FAERS Safety Report 5518522-9 (Version None)
Quarter: 2007Q4

REPORT INFORMATION
  Report Type: 
  Country: None (occurrence: None)
  Receive Date: 20071115
  Receipt Date: 20071106
  Transmission Date: 20080405
  Serious: Yes (Death)
  Sender: FDA-Public Use
  Company Number: JP-BRISTOL-MYERS SQUIBB COMPANY-13980313

PATIENT
  Age: 84 Year
  Sex: Female

DRUGS (3)
  1. ARIPIPRAZOLE [Suspect]
     Indication: DEMENTIA
     Route: 048
     Dates: start: 20070921, end: 20071030
  2. QUETIAPINE FUMARATE [Concomitant]
     Route: 048
     Dates: end: 20071030
  3. BROTIZOLAM [Concomitant]
     Route: 048
     Dates: end: 20071030

REACTIONS (2)
  - DEATH [None]
  - LIVER DISORDER [None]
